FAERS Safety Report 19266301 (Version 1)
Quarter: 2021Q2

REPORT INFORMATION
  Report Type: Other
  Country: US (occurrence: US)
  Receive Date: 20210517
  Receipt Date: 20210517
  Transmission Date: 20210717
  Serious: Yes (Hospitalization)
  Sender: FDA-Public Use
  Company Number: US-ROCHE-2826150

PATIENT
  Age: 60 Year
  Sex: Female
  Weight: 60.3 kg

DRUGS (4)
  1. OXYBUTIN [Concomitant]
     Active Substance: OXYBUTYNIN
  2. OCREVUS [Suspect]
     Active Substance: OCRELIZUMAB
     Indication: RELAPSING MULTIPLE SCLEROSIS
     Dosage: 28/MAR/2018, 11/APR/2018, 28/SEP/2018
     Route: 065
     Dates: start: 20171016
  3. ATIVAN [Concomitant]
     Active Substance: LORAZEPAM
  4. ZOLOFT [Concomitant]
     Active Substance: SERTRALINE HYDROCHLORIDE

REACTIONS (11)
  - Fall [Unknown]
  - Fatigue [Unknown]
  - Anxiety [Unknown]
  - Constipation [Unknown]
  - COVID-19 [Unknown]
  - Acute respiratory failure [Unknown]
  - Diarrhoea [Unknown]
  - Urinary incontinence [Unknown]
  - Arthralgia [Unknown]
  - Weight decreased [Unknown]
  - Vitamin D decreased [Unknown]

NARRATIVE: CASE EVENT DATE: 202101
